FAERS Safety Report 19995744 (Version 1)
Quarter: 2021Q4

REPORT INFORMATION
  Report Type: Report from Study
  Country: CA (occurrence: CA)
  Receive Date: 20211026
  Receipt Date: 20211026
  Transmission Date: 20220303
  Serious: Yes (Other)
  Sender: FDA-Public Use
  Company Number: CA-BOEHRINGERINGELHEIM-2021-BI-133542

PATIENT
  Age: 72 Year
  Sex: Male

DRUGS (1)
  1. OFEV [Suspect]
     Active Substance: NINTEDANIB
     Indication: Product used for unknown indication
     Route: 048
     Dates: start: 20211003, end: 20211016

REACTIONS (10)
  - Prostate cancer [Not Recovered/Not Resolved]
  - Arthralgia [Recovering/Resolving]
  - Liver function test increased [Unknown]
  - Chills [Recovered/Resolved]
  - Decreased appetite [Recovering/Resolving]
  - Chromaturia [Recovering/Resolving]
  - Musculoskeletal discomfort [Recovering/Resolving]
  - Abdominal discomfort [Recovering/Resolving]
  - Taste disorder [Recovering/Resolving]
  - Fatigue [Recovering/Resolving]

NARRATIVE: CASE EVENT DATE: 20211006
